FAERS Safety Report 21845519 (Version 2)
Quarter: 2023Q2

REPORT INFORMATION
  Report Type: Spontaneous
  Country: US (occurrence: US)
  Receive Date: 20230111
  Receipt Date: 20230523
  Transmission Date: 20230721
  Serious: No
  Sender: FDA-Public Use
  Company Number: US-BRISTOL-MYERS SQUIBB COMPANY-2023-003547

PATIENT
  Age: 67 Year
  Sex: Male
  Weight: 69.85 kg

DRUGS (2)
  1. POMALYST [Suspect]
     Active Substance: POMALIDOMIDE
     Indication: Plasma cell myeloma
     Dosage: 21D ON 7D OFF
     Route: 048
  2. POMALYST [Suspect]
     Active Substance: POMALIDOMIDE
     Dosage: FREQ-DAILY FOR 21 DAYS
     Route: 048
     Dates: start: 20221101

REACTIONS (4)
  - Dry skin [Recovered/Resolved]
  - Dyspnoea [Unknown]
  - Dermatitis [Unknown]
  - Rash [Unknown]
